FAERS Safety Report 24202205 (Version 1)
Quarter: 2024Q3

REPORT INFORMATION
  Report Type: Spontaneous
  Country: US (occurrence: US)
  Receive Date: 20240812
  Receipt Date: 20240812
  Transmission Date: 20241017
  Serious: No
  Sender: NOVARTIS
  Company Number: US-002147023-NVSC2024US163507

PATIENT
  Sex: Female

DRUGS (2)
  1. TEGRETOL [Suspect]
     Active Substance: CARBAMAZEPINE
     Indication: Tuberous sclerosis complex
     Dosage: UNK
     Route: 065
  2. TEGRETOL [Suspect]
     Active Substance: CARBAMAZEPINE
     Indication: Seizure

REACTIONS (1)
  - Drug ineffective [Unknown]
